FAERS Safety Report 7961065-3 (Version None)
Quarter: 2011Q4

REPORT INFORMATION
  Report Type: 
  Country: None (occurrence: None)
  Receive Date: 20111201
  Receipt Date: 20111201
  Transmission Date: 20120403
  Serious: Yes (Other)
  Sender: FDA-Public Use
  Company Number: None

PATIENT
  Age: 50 Year
  Sex: Female

DRUGS (1)
  1. ZYFLO [Suspect]
     Indication: ASTHMA
     Dosage: 2 TABS 2X DAILY BY MOUTH
     Route: 048
     Dates: start: 20111015, end: 20111016

REACTIONS (6)
  - ERUCTATION [None]
  - ANXIETY [None]
  - CHEST PAIN [None]
  - FLATULENCE [None]
  - NAUSEA [None]
  - ABNORMAL DREAMS [None]
